FAERS Safety Report 6217897-5 (Version None)
Quarter: 2009Q2

REPORT INFORMATION
  Report Type: 
  Country: None (occurrence: None)
  Receive Date: 20090604
  Receipt Date: 20090522
  Transmission Date: 20091009
  Serious: No
  Sender: FDA-Public Use
  Company Number: 006182

PATIENT
  Age: 79 Year
  Sex: Male
  Weight: 57.5 kg

DRUGS (9)
  1. PLETAL [Suspect]
     Indication: TRANSIENT ISCHAEMIC ATTACK
     Dosage: 50 MG, BID ORAL
     Route: 048
     Dates: start: 20090220, end: 20090306
  2. BAYASPIRIN (ACETYLSALICLIC ACID) [Concomitant]
  3. ALLOPURINOL [Concomitant]
  4. AMLODIPINE [Concomitant]
  5. DOXAZOSIN MESYLATE [Concomitant]
  6. ALDOMET [Concomitant]
  7. LIVALO (PITAVASTATIN CALCIUM) [Concomitant]
  8. PURSENNID (SENNOSIDE A+B, SENNOSIDE A+B CALCIUM) [Concomitant]
  9. KREMEZIN (SPHERICAL ABSORBENT COAL) [Concomitant]

REACTIONS (3)
  - CARDIAC FAILURE [None]
  - OEDEMA PERIPHERAL [None]
  - WEIGHT INCREASED [None]
